FAERS Safety Report 12470904 (Version 1)
Quarter: 2016Q2

REPORT INFORMATION
  Report Type: Spontaneous
  Country: IT (occurrence: IT)
  Receive Date: 20160616
  Receipt Date: 20160616
  Transmission Date: 20160815
  Serious: Yes (Other)
  Sender: FDA-Public Use
  Company Number: IT-SUN PHARMACEUTICAL INDUSTRIES LTD-2016RR-118221

PATIENT
  Age: 54 Year
  Sex: Female

DRUGS (2)
  1. CALCIUM CARBONATE/ CHOLECALCIFEROL [Suspect]
     Active Substance: CALCIUM CARBONATE\CHOLECALCIFEROL
     Indication: OSTEOPOROSIS
     Dosage: 1 G + 800 IU, QD
     Route: 065
     Dates: start: 20110101
  2. ALENDRONATO [Suspect]
     Active Substance: ALENDRONATE SODIUM
     Indication: OSTEOPOROSIS
     Dosage: 70 MG, 1/WEEK
     Route: 065
     Dates: start: 20110101, end: 20160101

REACTIONS (6)
  - Spinal fracture [Unknown]
  - Hyperparathyroidism secondary [Recovered/Resolved]
  - Osteoporosis [Unknown]
  - Nausea [Unknown]
  - Condition aggravated [Unknown]
  - Abdominal distension [Unknown]
